FAERS Safety Report 15093415 (Version 1)
Quarter: 2018Q2

REPORT INFORMATION
  Report Type: Spontaneous
  Country: FR (occurrence: FR)
  Receive Date: 20180629
  Receipt Date: 20180629
  Transmission Date: 20180711
  Serious: Yes (Hospitalization)
  Sender: FDA-Public Use
  Company Number: FR-TEVA-2018-FR-916201

PATIENT
  Age: 67 Year
  Sex: Male

DRUGS (8)
  1. OFLOXACINE [Suspect]
     Active Substance: OFLOXACIN
     Indication: INTERVERTEBRAL DISCITIS
     Dosage: 400 MILLIGRAM DAILY;
     Route: 048
     Dates: start: 20180410, end: 20180515
  2. RIFAMPICINE [Suspect]
     Active Substance: RIFAMPIN
     Indication: INTERVERTEBRAL DISCITIS
     Dosage: 600 MILLIGRAM DAILY;
     Route: 048
     Dates: start: 20180407, end: 20180515
  3. MACROGOL (DISTEARATE DE) [Concomitant]
     Active Substance: POLYETHYLENE GLYCOLS
  4. ESOMEPRAZOLE [Concomitant]
     Active Substance: ESOMEPRAZOLE
  5. METOCLOPRAMIDE. [Concomitant]
     Active Substance: METOCLOPRAMIDE
  6. NIFUROXAZIDE [Concomitant]
     Active Substance: NIFUROXAZIDE
  7. COLCHICINE. [Concomitant]
     Active Substance: COLCHICINE
  8. LANSOPRAZOLE. [Concomitant]
     Active Substance: LANSOPRAZOLE

REACTIONS (1)
  - Toxic skin eruption [Not Recovered/Not Resolved]

NARRATIVE: CASE EVENT DATE: 20180509
